FAERS Safety Report 9620833 (Version 1)
Quarter: 2013Q4

REPORT INFORMATION
  Report Type: Spontaneous
  Country: BR (occurrence: BR)
  Receive Date: 20131015
  Receipt Date: 20131015
  Transmission Date: 20140711
  Serious: Yes (Other)
  Sender: FDA-Public Use
  Company Number: BR-ACCORD-019906

PATIENT
  Age: 44 Year
  Sex: Female
  Weight: 65.8 kg

DRUGS (5)
  1. PACLITAXEL [Suspect]
     Indication: CHEMOTHERAPY
     Dosage: INFUSION WAS RESUMED UNEVENTFULLY AFTER RECOVERY.
     Route: 042
     Dates: start: 20130903, end: 20130903
  2. NAUSETRON [Concomitant]
     Route: 042
     Dates: start: 20130903, end: 20130903
  3. UNIDEXA [Concomitant]
     Route: 042
     Dates: start: 20130903, end: 20130903
  4. RANITIDINE [Concomitant]
     Route: 042
     Dates: start: 20130903, end: 20130903
  5. SALINE [Concomitant]
     Dosage: SF 500ML, 1 BAG
     Dates: start: 20130903, end: 20130903

REACTIONS (3)
  - Choking [Recovered/Resolved]
  - Tachycardia [Recovered/Resolved]
  - Feeling hot [Recovered/Resolved]
